FAERS Safety Report 10045406 (Version 2)
Quarter: 2014Q1

REPORT INFORMATION
  Report Type: Report from Study
  Country: US (occurrence: US)
  Receive Date: 20140328
  Receipt Date: 20140328
  Transmission Date: 20141002
  Serious: Yes (Hospitalization)
  Sender: FDA-Public Use
  Company Number: PHHO2014US001873

PATIENT
  Age: 85 Year
  Sex: Female
  Weight: 75.5 kg

DRUGS (19)
  1. BLINDED [Suspect]
     Indication: ANAEMIA
     Dosage: CODE NOT BROKEN
     Route: 058
     Dates: start: 20131015, end: 20140123
  2. BLINDED EPOETIN ALPHA [Suspect]
     Indication: ANAEMIA
     Dosage: CODE NOT BROKEN
     Route: 058
     Dates: start: 20131015, end: 20140123
  3. BLINDED ERYPO [Suspect]
     Indication: ANAEMIA
     Dosage: CODE NOT BROKEN
     Route: 058
     Dates: start: 20131015, end: 20140123
  4. BLINDED NO TREATMENT RECEIVED [Suspect]
     Indication: ANAEMIA
     Dosage: CODE NOT BROKEN
     Route: 058
     Dates: start: 20131015, end: 20140123
  5. LABETALOL [Suspect]
     Indication: HYPERTENSION
     Dosage: 200 MG, BID
     Dates: start: 20101221, end: 201312
  6. ALPRAZOLAM [Concomitant]
     Indication: ANXIETY
     Dosage: 0.25 MG, PRN
     Dates: start: 20130502
  7. AMLODIPINE [Concomitant]
     Dosage: UNK
  8. CYMBALTA [Concomitant]
     Dosage: UNK
  9. VALSARTAN [Concomitant]
     Dosage: UNK
  10. RANITIDINE [Concomitant]
     Indication: GASTROOESOPHAGEAL REFLUX DISEASE
     Dosage: 150 MG, BID
     Dates: start: 20120501
  11. COMBIGAN [Concomitant]
     Indication: GLAUCOMA
     Dosage: 1 DF, BID (C/D, BID)
  12. LUMIGAN [Concomitant]
     Indication: GLAUCOMA
     Dosage: 1 DF, QD (C/D BID)
  13. BABY ASPIRIN [Concomitant]
     Indication: PROPHYLAXIS
     Dosage: 81 MG, OD
  14. MIRALAX [Concomitant]
     Indication: CONSTIPATION
     Dosage: 7.5 MG, OD
     Dates: start: 20101109
  15. PHOSLO [Concomitant]
     Indication: HYPERPHOSPHATAEMIA
     Dosage: 667 MG, TID
  16. LISINOPRIL [Concomitant]
     Indication: HYPERTENSION
     Dosage: 20 MG, OD
     Dates: start: 20101221
  17. VITA-D [Concomitant]
     Indication: SUPPLEMENTATION THERAPY
  18. ZOLPIDEM [Concomitant]
     Dosage: 5 MG, QD
  19. VITAMIN B12 [Concomitant]
     Dosage: 500 UG, QD

REACTIONS (5)
  - Sinus arrest [Unknown]
  - Urinary tract infection [Recovered/Resolved]
  - Streptococcal sepsis [Recovered/Resolved]
  - Chest pain [Recovered/Resolved]
  - Enteritis [Recovered/Resolved]
